FAERS Safety Report 15237423 (Version 1)
Quarter: 2018Q3

REPORT INFORMATION
  Report Type: Spontaneous
  Country: FR (occurrence: FR)
  Receive Date: 20180803
  Receipt Date: 20180803
  Transmission Date: 20181010
  Serious: Yes (Hospitalization)
  Sender: FDA-Public Use
  Company Number: PHHY2015FR083783

PATIENT
  Age: 66 Year
  Sex: Male

DRUGS (2)
  1. METHYLPREDNISOLONE. [Concomitant]
     Active Substance: METHYLPREDNISOLONE
     Indication: ACUTE DISSEMINATED ENCEPHALOMYELITIS
     Dosage: 1 G, QD
     Route: 065
  2. AMOXICILLIN. [Suspect]
     Active Substance: AMOXICILLIN
     Indication: PRODUCT USED FOR UNKNOWN INDICATION
     Dosage: 3 G, 6QD
     Route: 065

REACTIONS (6)
  - Acute kidney injury [Unknown]
  - Polyuria [Unknown]
  - Crystal nephropathy [Unknown]
  - Hypotension [Recovered/Resolved]
  - Oliguria [Unknown]
  - Haematuria [Unknown]
